FAERS Safety Report 11724898 (Version 1)
Quarter: 2015Q4

REPORT INFORMATION
  Report Type: Spontaneous
  Country: US (occurrence: US)
  Receive Date: 20151110
  Receipt Date: 20151110
  Transmission Date: 20160304
  Serious: No
  Sender: FDA-Public Use
  Company Number: US-ELI_LILLY_AND_COMPANY-US201109004436

PATIENT
  Sex: Female

DRUGS (12)
  1. BABY ASPIRIN [Concomitant]
     Active Substance: ASPIRIN
  2. WATER PILLS [Concomitant]
     Active Substance: UNSPECIFIED INGREDIENT
  3. FISH OIL [Concomitant]
     Active Substance: FISH OIL
  4. POTASSIUM [Concomitant]
     Active Substance: POTASSIUM
  5. SYNTHROID [Concomitant]
     Active Substance: LEVOTHYROXINE SODIUM
  6. VITAMIN D [Concomitant]
     Active Substance: CHOLECALCIFEROL
  7. VITAMIN C [Concomitant]
     Active Substance: ASCORBIC ACID
  8. FORTEO [Suspect]
     Active Substance: TERIPARATIDE
     Indication: OSTEOPOROSIS
     Dosage: 20 UG, QD
     Route: 065
     Dates: start: 201102
  9. LEUCINE [Concomitant]
     Active Substance: LEUCINE
  10. OCUVITE [Concomitant]
     Active Substance: VITAMINS
  11. ANTIHYPERTENSIVES [Concomitant]
     Active Substance: UNSPECIFIED INGREDIENT
  12. CALCIUM [Concomitant]
     Active Substance: CALCIUM

REACTIONS (1)
  - Spinal fracture [Unknown]
